FAERS Safety Report 10276586 (Version 1)
Quarter: 2014Q3

REPORT INFORMATION
  Report Type: Spontaneous
  Country: US (occurrence: US)
  Receive Date: 20140703
  Receipt Date: 20140703
  Transmission Date: 20150326
  Serious: Yes (Other)
  Sender: FDA-Public Use
  Company Number: US-TEVA-491450USA

PATIENT
  Sex: Female

DRUGS (1)
  1. ENALAPRIL [Suspect]
     Active Substance: ENALAPRIL

REACTIONS (5)
  - Blood pressure increased [Unknown]
  - Depression [Unknown]
  - Suicidal ideation [Unknown]
  - Fall [Unknown]
  - Dizziness [Unknown]
